FAERS Safety Report 8294405-9 (Version None)
Quarter: 2012Q2

REPORT INFORMATION
  Report Type: 
  Country: None (occurrence: None)
  Receive Date: 20120418
  Receipt Date: 20060816
  Transmission Date: 20120825
  Serious: Yes (Hospitalization)
  Sender: FDA-Public Use
  Company Number: PHHY2006SG009436

PATIENT
  Sex: Female

DRUGS (2)
  1. GLEEVEC [Suspect]
     Dates: start: 20060821
  2. GLEEVEC [Suspect]
     Indication: CHRONIC MYELOID LEUKAEMIA
     Dates: start: 20020601

REACTIONS (4)
  - FLUID RETENTION [None]
  - HEPATITIS B [None]
  - HAEMORRHAGE [None]
  - LIVER DISORDER [None]
